FAERS Safety Report 6289876-3 (Version None)
Quarter: 2009Q3

REPORT INFORMATION
  Report Type: 
  Country: None (occurrence: None)
  Receive Date: 20090730
  Receipt Date: 20081120
  Transmission Date: 20100115
  Serious: No
  Sender: FDA-Public Use
  Company Number: US-BRISTOL-MYERS SQUIBB COMPANY-14323059

PATIENT
  Sex: Female

DRUGS (3)
  1. COUMADIN [Suspect]
  2. ALPRAZOLAM [Concomitant]
  3. CORTISPORIN [Concomitant]
     Dosage: EAR DROPS.

REACTIONS (3)
  - INTERNATIONAL NORMALISED RATIO DECREASED [None]
  - INTERNATIONAL NORMALISED RATIO FLUCTUATION [None]
  - INTERNATIONAL NORMALISED RATIO INCREASED [None]
